FAERS Safety Report 4525067-1 (Version None)
Quarter: 2004Q4

REPORT INFORMATION
  Report Type: 
  Country: None (occurrence: None)
  Receive Date: 20041210
  Receipt Date: 20041130
  Transmission Date: 20050328
  Serious: Yes (Death)
  Sender: FDA-Public Use
  Company Number: 2004101771

PATIENT
  Age: 58 Year
  Sex: Male

DRUGS (2)
  1. NEURONTIN [Suspect]
     Indication: TRIGEMINAL NEURALGIA
     Dosage: 300 MG (300 MG, 1 IN 1 D), ORAL
     Route: 048
  2. CARBAMAZEPINE [Concomitant]

REACTIONS (1)
  - SUDDEN CARDIAC DEATH [None]
